FAERS Safety Report 9912170 (Version 3)
Quarter: 2016Q2

REPORT INFORMATION
  Report Type: Spontaneous
  Country: US (occurrence: US)
  Receive Date: 20140220
  Receipt Date: 20160504
  Transmission Date: 20160815
  Serious: Yes (Death, Other)
  Sender: FDA-Public Use
  Company Number: US-ROCHE-1041627

PATIENT
  Sex: Male

DRUGS (10)
  1. LUCENTIS [Suspect]
     Active Substance: RANIBIZUMAB
     Indication: NEOVASCULAR AGE-RELATED MACULAR DEGENERATION
     Route: 065
  2. AVASTIN [Suspect]
     Active Substance: BEVACIZUMAB
     Dosage: RIGHT EYE (OD)
     Route: 065
     Dates: start: 201110, end: 201204
  3. AVASTIN [Suspect]
     Active Substance: BEVACIZUMAB
     Indication: AGE-RELATED MACULAR DEGENERATION
     Dosage: 1.25 MG/0.05 ML
     Route: 065
     Dates: start: 20120125, end: 20120222
  4. TAMSULOSINE [Concomitant]
     Active Substance: TAMSULOSIN HYDROCHLORIDE
     Indication: BENIGN PROSTATIC HYPERPLASIA
     Route: 048
  5. OMEGA FISH OIL [Concomitant]
     Active Substance: FISH OIL\OMEGA-3 FATTY ACIDS
     Route: 048
  6. AVASTIN [Suspect]
     Active Substance: BEVACIZUMAB
     Dosage: RIGHT EYE (OD)
     Route: 065
     Dates: start: 201208, end: 201211
  7. AVASTIN [Suspect]
     Active Substance: BEVACIZUMAB
     Dosage: LEFT EYE (OS)
     Route: 065
     Dates: start: 201211, end: 201301
  8. LUCENTIS [Suspect]
     Active Substance: RANIBIZUMAB
     Dosage: LEFT EYE (OS)
     Route: 065
     Dates: start: 201302, end: 201308
  9. LUTEIN [Concomitant]
     Active Substance: LUTEIN
     Indication: AGE-RELATED MACULAR DEGENERATION
     Route: 048
  10. LUCENTIS [Suspect]
     Active Substance: RANIBIZUMAB
     Dosage: RIGHT EYE (OD)
     Route: 065
     Dates: start: 201212, end: 201308

REACTIONS (10)
  - Retinal oedema [Unknown]
  - No therapeutic response [Unknown]
  - Hepatic failure [Fatal]
  - Visual acuity reduced [Unknown]
  - Visual impairment [Unknown]
  - Suspected counterfeit product [Unknown]
  - Cataract [Unknown]
  - Detachment of retinal pigment epithelium [Unknown]
  - Product quality issue [Unknown]
  - Pigmentation disorder [Unknown]
